FAERS Safety Report 7054127-9 (Version None)
Quarter: 2010Q4

REPORT INFORMATION
  Report Type: 
  Country: None (occurrence: None)
  Receive Date: 20101020
  Receipt Date: 20101007
  Transmission Date: 20110411
  Serious: Yes (Other)
  Sender: FDA-Public Use
  Company Number: PHHY2010CA30396

PATIENT
  Sex: Male

DRUGS (2)
  1. ZOMETA [Suspect]
     Indication: PROSTATE CANCER METASTATIC
     Dosage: 3.3 MG, QMO
     Route: 042
     Dates: start: 20100315
  2. ZOMETA [Suspect]
     Dosage: 3.3 MG EVERY 8 WEEKS
     Route: 042

REACTIONS (9)
  - ASTHENIA [None]
  - BLOOD ALBUMIN DECREASED [None]
  - BLOOD CREATININE INCREASED [None]
  - ERYTHEMA [None]
  - FEELING ABNORMAL [None]
  - MALAISE [None]
  - OCULAR ICTERUS [None]
  - PAIN [None]
  - TREATMENT NONCOMPLIANCE [None]
